FAERS Safety Report 5585070-X (Version None)
Quarter: 2008Q1

REPORT INFORMATION
  Report Type: 
  Country: None (occurrence: None)
  Receive Date: 20080104
  Receipt Date: 20080104
  Transmission Date: 20080703
  Serious: Yes (Hospitalization)
  Sender: FDA-Public Use
  Company Number: None

PATIENT
  Age: 56 Year
  Sex: Female

DRUGS (6)
  1. KALETRA [Suspect]
     Indication: HIV INFECTION
     Dosage: 50/200   2 TS BID
  2. COMBIVIR [Suspect]
     Dosage: 1 T BID
  3. DAPSONE [Concomitant]
  4. EXELON [Concomitant]
  5. GABITRIL [Concomitant]
  6. ROZEREM [Concomitant]

REACTIONS (1)
  - LIVER FUNCTION TEST ABNORMAL [None]
